FAERS Safety Report 16886089 (Version 1)
Quarter: 2019Q4

REPORT INFORMATION
  Report Type: Spontaneous
  Country: US (occurrence: US)
  Receive Date: 20191004
  Receipt Date: 20191004
  Transmission Date: 20200122
  Serious: Yes (Life-Threatening, Hospitalization, Disabling)
  Sender: FDA-Public Use
  Company Number: None

PATIENT
  Age: 48 Year
  Sex: Female
  Weight: 57.6 kg

DRUGS (2)
  1. DEPAKOTE SPRINKLES [Suspect]
     Active Substance: DIVALPROEX SODIUM
  2. DEPAKOTE [Suspect]
     Active Substance: DIVALPROEX SODIUM
     Indication: BIPOLAR DISORDER

REACTIONS (28)
  - Drug monitoring procedure incorrectly performed [None]
  - Fatigue [None]
  - Blood sodium decreased [None]
  - Tinnitus [None]
  - Inappropriate antidiuretic hormone secretion [None]
  - Akathisia [None]
  - Asthenia [None]
  - Withdrawal syndrome [None]
  - Amnesia [None]
  - Exercise tolerance decreased [None]
  - Diastolic dysfunction [None]
  - Alopecia [None]
  - Asthma exercise induced [None]
  - Hyperammonaemia [None]
  - Nausea [None]
  - Foot fracture [None]
  - Raynaud^s phenomenon [None]
  - Palpitations [None]
  - Drug level increased [None]
  - Dysphagia [None]
  - Allodynia [None]
  - Blood thyroid stimulating hormone increased [None]
  - Paraesthesia [None]
  - Muscle fatigue [None]
  - Tachycardia [None]
  - Dyspnoea [None]
  - Anxiety [None]
  - Weight decreased [None]

NARRATIVE: CASE EVENT DATE: 20171124
